FAERS Safety Report 4353895-4 (Version None)
Quarter: 2004Q2

REPORT INFORMATION
  Report Type: 
  Country: None (occurrence: None)
  Receive Date: 20040506
  Receipt Date: 20040119
  Transmission Date: 20050107
  Serious: No
  Sender: FDA-Public Use
  Company Number: US-GLAXOSMITHKLINE-A0493954A

PATIENT
  Age: 45 Year
  Sex: Female

DRUGS (2)
  1. AMOXIL [Suspect]
     Indication: TOOTH INFECTION
     Dosage: 400MG FOUR TIMES PER DAY
     Route: 048
     Dates: start: 20040118, end: 20040119
  2. TYLENOL W/ CODEINE [Concomitant]

REACTIONS (1)
  - ERYTHEMA [None]
